FAERS Safety Report 4791894-9 (Version None)
Quarter: 2005Q4

REPORT INFORMATION
  Report Type: 
  Country: None (occurrence: None)
  Receive Date: 20051005
  Receipt Date: 20050912
  Transmission Date: 20060501
  Serious: Yes (Hospitalization)
  Sender: FDA-Public Use
  Company Number: 2005RR-00786

PATIENT
  Age: 29 Year
  Sex: 0

DRUGS (1)
  1. FLUOXETINE [Suspect]
     Indication: DEPRESSION
     Dosage: 15 MG, ORAL
     Route: 048
     Dates: start: 20050704, end: 20050804

REACTIONS (5)
  - DIARRHOEA [None]
  - FACE OEDEMA [None]
  - RASH [None]
  - SYNOVITIS [None]
  - VOMITING [None]
